FAERS Safety Report 9815924 (Version 2)
Quarter: 2014Q1

REPORT INFORMATION
  Report Type: Spontaneous
  Country: US (occurrence: US)
  Receive Date: 20140114
  Receipt Date: 20140114
  Transmission Date: 20141002
  Serious: No
  Sender: FDA-Public Use
  Company Number: US-GILEAD-2011-0036103

PATIENT
  Age: 21 Year
  Sex: Female

DRUGS (1)
  1. VISTIDE [Suspect]
     Indication: LARYNGEAL PAPILLOMA
     Dates: start: 20101229, end: 20101229

REACTIONS (2)
  - Pregnancy [Unknown]
  - Off label use [Recovered/Resolved]
